FAERS Safety Report 25734997 (Version 1)
Quarter: 2025Q3

REPORT INFORMATION
  Report Type: Spontaneous
  Country: US (occurrence: None)
  Receive Date: 20250827
  Receipt Date: 20250827
  Transmission Date: 20251020
  Serious: Yes (Other)
  Sender: FDA-CTU
  Company Number: None

PATIENT
  Age: 75 Year
  Sex: Female

DRUGS (5)
  1. SUZETRIGINE [Suspect]
     Active Substance: SUZETRIGINE
     Indication: Neuralgia
     Dosage: FREQUENCY : TWICE A DAY;?
     Route: 048
     Dates: start: 20250606, end: 20250619
  2. AMLODIPINE BESYLATE [Concomitant]
     Active Substance: AMLODIPINE BESYLATE
     Dates: start: 20240315
  3. GABAPENTIN [Concomitant]
     Active Substance: GABAPENTIN
     Dates: start: 20240509
  4. SIMVASTATIN [Concomitant]
     Active Substance: SIMVASTATIN
  5. MIRTAZAPINE [Concomitant]
     Active Substance: MIRTAZAPINE

REACTIONS (4)
  - Muscular weakness [None]
  - Therapy interrupted [None]
  - Fall [None]
  - Therapy cessation [None]

NARRATIVE: CASE EVENT DATE: 20250609
